FAERS Safety Report 6734355-X (Version None)
Quarter: 2010Q2

REPORT INFORMATION
  Report Type: 
  Country: None (occurrence: None)
  Receive Date: 20100520
  Receipt Date: 20100512
  Transmission Date: 20101027
  Serious: Yes (Death)
  Sender: FDA-Public Use
  Company Number: TR-BAXTER-2010BH013265

PATIENT
  Age: 63 Year
  Sex: Female

DRUGS (8)
  1. CYCLOPHOSPHAMIDE [Suspect]
     Indication: MANTLE CELL LYMPHOMA
     Route: 065
  2. RITUXIMAB [Suspect]
     Indication: MANTLE CELL LYMPHOMA
     Route: 065
  3. VINCRISTINE [Suspect]
     Indication: MANTLE CELL LYMPHOMA
     Route: 065
  4. DOXORUBICIN HCL [Suspect]
     Indication: MANTLE CELL LYMPHOMA
     Route: 065
  5. PREDNISOLONE [Suspect]
     Indication: MANTLE CELL LYMPHOMA
     Route: 065
  6. CEFEPIME [Concomitant]
     Indication: PYREXIA
     Route: 042
  7. CIPROFLOXACIN [Concomitant]
     Indication: PYREXIA
     Route: 042
  8. IMIPENEM [Concomitant]
     Indication: ECTHYMA
     Route: 065

REACTIONS (1)
  - MUCORMYCOSIS [None]
